FAERS Safety Report 18774221 (Version 1)
Quarter: 2021Q1

REPORT INFORMATION
  Report Type: Report from Study
  Country: US (occurrence: US)
  Receive Date: 20210122
  Receipt Date: 20210122
  Transmission Date: 20210419
  Serious: Yes (Other)
  Sender: FDA-Public Use
  Company Number: US-EMD SERONO-E2B_90050202

PATIENT
  Age: 59 Year
  Sex: Female

DRUGS (1)
  1. REBIF [Suspect]
     Active Substance: INTERFERON BETA-1A
     Indication: MULTIPLE SCLEROSIS
     Dosage: REBIF PREFILLED SYRINGE
     Route: 058
     Dates: start: 20180406

REACTIONS (7)
  - Memory impairment [Unknown]
  - Treatment noncompliance [Recovered/Resolved]
  - Peripheral ischaemia [Recovering/Resolving]
  - Influenza like illness [Not Recovered/Not Resolved]
  - Injection site scab [Recovering/Resolving]
  - Injection site vesicles [Recovering/Resolving]
  - Injection site injury [Unknown]

NARRATIVE: CASE EVENT DATE: 202003
